FAERS Safety Report 8515655-X (Version None)
Quarter: 2012Q3

REPORT INFORMATION
  Report Type: 
  Country: None (occurrence: None)
  Receive Date: 20120717
  Receipt Date: 20120711
  Transmission Date: 20120928
  Serious: Yes (Hospitalization)
  Sender: FDA-Public Use
  Company Number: PHEH2012US013712

PATIENT
  Sex: Female

DRUGS (1)
  1. DIOVAN HCT [Suspect]
     Indication: BLOOD PRESSURE
     Dosage: 1 DF, QD
     Route: 048
     Dates: start: 20070101

REACTIONS (3)
  - THROMBOSIS [None]
  - MALAISE [None]
  - HEART RATE INCREASED [None]
